FAERS Safety Report 20147910 (Version 1)
Quarter: 2021Q4

REPORT INFORMATION
  Report Type: Spontaneous
  Country: CN (occurrence: None)
  Receive Date: 20211203
  Receipt Date: 20211203
  Transmission Date: 20220304
  Serious: Yes (Other)
  Sender: FDA-Public Use
  Company Number: CN-ROCHE-2966360

PATIENT
  Age: 64 Year
  Sex: Male

DRUGS (5)
  1. ATEZOLIZUMAB [Suspect]
     Active Substance: ATEZOLIZUMAB
     Indication: Small cell lung cancer extensive stage
     Route: 041
  2. ETOPOSIDE [Concomitant]
     Active Substance: ETOPOSIDE
  3. CARBOPLATIN [Concomitant]
     Active Substance: CARBOPLATIN
  4. IRINOTECAN [Concomitant]
     Active Substance: IRINOTECAN
  5. CISPLATIN [Concomitant]
     Active Substance: CISPLATIN

REACTIONS (4)
  - Asthenia [Unknown]
  - Rash [Unknown]
  - Gastrointestinal disorder [Unknown]
  - Myelosuppression [Unknown]
